FAERS Safety Report 4457166-7 (Version None)
Quarter: 2004Q3

REPORT INFORMATION
  Report Type: 
  Country: None (occurrence: None)
  Receive Date: 20040921
  Receipt Date: 20040908
  Transmission Date: 20050211
  Serious: Yes (Hospitalization)
  Sender: FDA-Public Use
  Company Number: 04P-163-0272684-00

PATIENT
  Age: 59 Year
  Sex: Female

DRUGS (7)
  1. HUMIRA [Suspect]
     Indication: RHEUMATOID ARTHRITIS
     Dosage: 40 MG, 1 IN 2 WEE, SUBCUTANEOUS
     Route: 058
     Dates: start: 20031212, end: 20040701
  2. ESOMEPRAZOLE [Concomitant]
  3. HYDROCODONE [Concomitant]
  4. PREDNSONE [Concomitant]
  5. CALCIUM [Concomitant]
  6. DIAZEPAM [Concomitant]
  7. CALCITONIN [Concomitant]

REACTIONS (4)
  - ASTHENIA [None]
  - BRONCHITIS [None]
  - DIPLOPIA [None]
  - MENINGITIS VIRAL [None]
